FAERS Safety Report 16105216 (Version 1)
Quarter: 2019Q1

REPORT INFORMATION
  Report Type: Spontaneous
  Country: JP (occurrence: JP)
  Receive Date: 20190322
  Receipt Date: 20190322
  Transmission Date: 20190418
  Serious: Yes (Other)
  Sender: FDA-Public Use
  Company Number: JP-BAYER-2019-051760

PATIENT
  Sex: Female
  Weight: 5.19 kg

DRUGS (1)
  1. MIRENA [Suspect]
     Active Substance: LEVONORGESTREL
     Dosage: 20 MCG/24HR, CONT
     Route: 015

REACTIONS (5)
  - Brachial plexopathy [None]
  - Foetal macrosomia [None]
  - Foetal exposure during pregnancy [None]
  - Shoulder dystocia [None]
  - Neonatal asphyxia [Recovered/Resolved]
